FAERS Safety Report 9816802 (Version 3)
Quarter: 2015Q3

REPORT INFORMATION
  Report Type: Spontaneous
  Country: US (occurrence: US)
  Receive Date: 20140114
  Receipt Date: 20150817
  Transmission Date: 20151125
  Serious: No
  Sender: FDA-Public Use
  Company Number: US-GILEAD-2014-0092047

PATIENT
  Age: 57 Year
  Sex: Female

DRUGS (3)
  1. REVATIO [Concomitant]
     Active Substance: SILDENAFIL CITRATE
  2. LETAIRIS [Suspect]
     Active Substance: AMBRISENTAN
     Indication: PRODUCT USED FOR UNKNOWN INDICATION
     Dosage: 10 MG, QD
     Route: 065
     Dates: start: 20131218
  3. LETAIRIS [Suspect]
     Active Substance: AMBRISENTAN
     Dates: start: 20100916

REACTIONS (4)
  - Asthenia [Unknown]
  - Non-cardiac chest pain [Unknown]
  - Dyspnoea [Unknown]
  - Fatigue [Unknown]
